FAERS Safety Report 4456316-6 (Version None)
Quarter: 2004Q3

REPORT INFORMATION
  Report Type: 
  Country: None (occurrence: None)
  Receive Date: 20040917
  Receipt Date: 20040831
  Transmission Date: 20050211
  Serious: Yes (Hospitalization, Other)
  Sender: FDA-Public Use
  Company Number: USA040772685

PATIENT
  Sex: Female

DRUGS (9)
  1. GEMZAR [Suspect]
     Indication: COLON CANCER METASTATIC
     Dates: start: 20040318
  2. ZOLOFT [Concomitant]
  3. CLONIDINE HCL [Concomitant]
  4. NYSTATIN [Concomitant]
  5. LASIX [Concomitant]
  6. BUSPAR [Concomitant]
  7. FLUOROURACIL [Concomitant]
  8. CPT-11 [Concomitant]
  9. METOMYCIN MITOMYCIN) [Concomitant]

REACTIONS (12)
  - BACTERIA URINE [None]
  - CARDIAC DISORDER [None]
  - HEART RATE INCREASED [None]
  - METASTASES TO LUNG [None]
  - NAUSEA [None]
  - NEPHROTIC SYNDROME [None]
  - PROTEIN URINE [None]
  - RED BLOOD CELLS URINE POSITIVE [None]
  - RENAL FAILURE [None]
  - RENAL FAILURE CHRONIC [None]
  - RENAL SCAN ABNORMAL [None]
  - VOMITING [None]
